FAERS Safety Report 14955262 (Version 1)
Quarter: 2018Q2

REPORT INFORMATION
  Report Type: Spontaneous
  Country: US (occurrence: US)
  Receive Date: 20180531
  Receipt Date: 20180531
  Transmission Date: 20180711
  Serious: No
  Sender: FDA-Public Use
  Company Number: US-B.I. PHARMACEUTICALS,INC./RIDGEFIELD-2018-BI-028278

PATIENT
  Sex: Male

DRUGS (1)
  1. SPIRIVA [Suspect]
     Active Substance: TIOTROPIUM BROMIDE MONOHYDRATE
     Indication: CARDIAC FAILURE CONGESTIVE
     Dosage: 2 INHALATIONS ONCE DAILY; FORM STRENGTH: 18 MCG; ADMINISTRATION CORRECT? NR
     Route: 055
     Dates: start: 201601

REACTIONS (2)
  - Cough [Unknown]
  - Off label use [Unknown]
